FAERS Safety Report 9528586 (Version 1)
Quarter: 2013Q2

REPORT INFORMATION
  Report Type: Spontaneous
  Country: US (occurrence: None)
  Receive Date: 20130402
  Receipt Date: 20130402
  Transmission Date: 20140414
  Serious: Yes (Life-Threatening, Hospitalization, Other)
  Sender: FDA-Public Use
  Company Number: RB-47621-2012

PATIENT
  Age: 23 Year
  Sex: Male

DRUGS (3)
  1. SUBOXONE [Suspect]
     Indication: DRUG DEPENDENCE
     Dosage: 16 MG, SUBOXONE FILM SUBINGUAL
     Route: 060
     Dates: start: 201110, end: 201205
  2. HEROIN [Suspect]
     Indication: DRUG ABUSE
     Route: 045
     Dates: start: 201206
  3. BENZODIAZEPINE [Suspect]
     Indication: DRUG ABUSE
     Dates: start: 201206

REACTIONS (4)
  - Overdose [None]
  - Therapeutic response unexpected [None]
  - Bipolar disorder [None]
  - Drug dependence [None]
